FAERS Safety Report 4950319-0 (Version None)
Quarter: 2006Q1

REPORT INFORMATION
  Report Type: 
  Country: None (occurrence: None)
  Receive Date: 20060322
  Receipt Date: 20060313
  Transmission Date: 20060701
  Serious: Yes (Other)
  Sender: FDA-Public Use
  Company Number: SE-JNJFOC-20060303477

PATIENT
  Age: 56 Year
  Sex: Male

DRUGS (7)
  1. REMICADE [Suspect]
     Route: 042
  2. REMICADE [Suspect]
     Route: 042
  3. REMICADE [Suspect]
     Indication: CROHN'S DISEASE
     Dosage: RECEIVED 2 INFUSIONS
     Route: 042
  4. SELOKEN [Concomitant]
  5. LIPITOR [Concomitant]
  6. TROMBYL [Concomitant]
  7. FLAGYL [Concomitant]

REACTIONS (6)
  - BLOOD PRESSURE DECREASED [None]
  - HEART RATE INCREASED [None]
  - INFUSION RELATED REACTION [None]
  - MALAISE [None]
  - PERIPHERAL COLDNESS [None]
  - TREMOR [None]
